FAERS Safety Report 17117369 (Version 1)
Quarter: 2019Q4

REPORT INFORMATION
  Report Type: Spontaneous
  Country: US (occurrence: US)
  Receive Date: 20191205
  Receipt Date: 20191205
  Transmission Date: 20200122
  Serious: No
  Sender: FDA-Public Use
  Company Number: US-BAYER-2019-218352

PATIENT
  Age: 48 Year
  Sex: Male

DRUGS (1)
  1. EOVIST [Suspect]
     Active Substance: GADOXETATE DISODIUM
     Indication: HEPATOCELLULAR CARCINOMA
     Dosage: UNK
     Dates: start: 20191120

REACTIONS (2)
  - Product use in unapproved indication [None]
  - Wrong dose [None]

NARRATIVE: CASE EVENT DATE: 20191120
